FAERS Safety Report 5123588-4 (Version None)
Quarter: 2006Q4

REPORT INFORMATION
  Report Type: 
  Country: None (occurrence: None)
  Receive Date: 20061005
  Receipt Date: 20060922
  Transmission Date: 20070319
  Serious: Yes (Death, Hospitalization)
  Sender: FDA-Public Use
  Company Number: 2006111392

PATIENT
  Age: 68 Year
  Sex: Male

DRUGS (7)
  1. SUTENT [Suspect]
     Indication: RENAL CELL CARCINOMA STAGE UNSPECIFIED
     Dosage: 50 MG (50 MG, DAILY FOR 4WKS FOLLOWED BY 2 WKS OFF), ORAL
     Route: 048
     Dates: start: 20060731, end: 20060829
  2. MS CONTIN [Concomitant]
  3. LACTULOSE [Concomitant]
  4. ACETAMINOPHEN [Concomitant]
  5. PREDNISOLONE [Concomitant]
  6. TEMAZEPAM [Concomitant]
  7. ORDINE       (MORPHINE HYDROCHLORIDE) [Concomitant]

REACTIONS (4)
  - DYSPNOEA [None]
  - GENERAL PHYSICAL HEALTH DETERIORATION [None]
  - HYPOXIA [None]
  - PNEUMOCYSTIS JIROVECI PNEUMONIA [None]
